FAERS Safety Report 17905551 (Version 2)
Quarter: 2024Q2

REPORT INFORMATION
  Report Type: Spontaneous
  Country: US (occurrence: None)
  Receive Date: 20200616
  Receipt Date: 20240524
  Transmission Date: 20240716
  Serious: No
  Sender: FDA-Public Use
  Company Number: US-ROCHE-2352250

PATIENT
  Sex: Female

DRUGS (9)
  1. ACTEMRA [Suspect]
     Active Substance: TOCILIZUMAB
     Indication: Rheumatoid arthritis
     Route: 058
     Dates: start: 20171019
  2. ZOCOR [Concomitant]
     Active Substance: SIMVASTATIN
  3. PLAQUENIL [Concomitant]
     Active Substance: HYDROXYCHLOROQUINE SULFATE
  4. IBUPROFEN [Concomitant]
     Active Substance: IBUPROFEN
  5. NEXIUM [Concomitant]
     Active Substance: ESOMEPRAZOLE MAGNESIUM
  6. FLUVIRIN NOS [Concomitant]
     Active Substance: INFLUENZA VIRUS VACCINE
     Dates: start: 2015, end: 2015
  7. FOLIC ACID [Concomitant]
     Active Substance: FOLIC ACID
  8. PREDNISONE [Concomitant]
     Active Substance: PREDNISONE
  9. SYNTHROID [Concomitant]
     Active Substance: LEVOTHYROXINE SODIUM

REACTIONS (1)
  - Illness [Unknown]
